FAERS Safety Report 4340993-4 (Version None)
Quarter: 2004Q2

REPORT INFORMATION
  Report Type: 
  Country: None (occurrence: None)
  Receive Date: 20040413
  Receipt Date: 20040330
  Transmission Date: 20050107
  Serious: Yes (Hospitalization)
  Sender: FDA-Public Use
  Company Number: US-JNJFOC-20040400168

PATIENT
  Age: 71 Year
  Sex: Female
  Weight: 52.1637 kg

DRUGS (14)
  1. ULTRACET [Suspect]
     Indication: ARTHRALGIA
     Dosage: ORAL
     Route: 048
  2. TOPROL (METOPROLOL SUCCINATE) [Concomitant]
  3. PREMARIN (ESTORGENS CONJUGATED) [Concomitant]
  4. PRILOSEC [Concomitant]
  5. PRAVACHOL [Concomitant]
  6. CLARITIN [Concomitant]
  7. NITROGLYCERIN [Concomitant]
  8. PAXIL [Concomitant]
  9. XANAX [Concomitant]
  10. ALTACE [Concomitant]
  11. ADVAIR (SERETIDE MITE) [Concomitant]
  12. POTASSIUM (POTASSIUM) [Concomitant]
  13. TORADOL (KETOROLACE TROMETHAMINE) [Concomitant]
  14. SINGULAIR [Concomitant]

REACTIONS (2)
  - BRONCHITIS [None]
  - PNEUMONIA [None]
